FAERS Safety Report 18498695 (Version 1)
Quarter: 2020Q4

REPORT INFORMATION
  Report Type: Report from Study
  Country: US (occurrence: US)
  Receive Date: 20201112
  Receipt Date: 20201112
  Transmission Date: 20210114
  Serious: Yes (Other)
  Sender: FDA-Public Use
  Company Number: US-TAKEDA-2020TUS048566

PATIENT
  Age: 3 Month
  Sex: Female
  Weight: 62.13 kg

DRUGS (1)
  1. HUMAN NORMAL IMMUNOGLOBULIN; LIQUID 20 [Suspect]
     Active Substance: HUMAN IMMUNOGLOBULIN G
     Indication: SELECTIVE IGA IMMUNODEFICIENCY
     Dosage: 13 GRAM, Q2WEEKS
     Route: 065
     Dates: start: 20201014, end: 20201028

REACTIONS (3)
  - Petit mal epilepsy [Recovered/Resolved]
  - White blood cell count increased [Recovered/Resolved]
  - Rash erythematous [Recovered/Resolved]

NARRATIVE: CASE EVENT DATE: 20201028
